FAERS Safety Report 8406344-0 (Version None)
Quarter: 2012Q2

REPORT INFORMATION
  Report Type: 
  Country: None (occurrence: None)
  Receive Date: 20120604
  Receipt Date: 20120531
  Transmission Date: 20120825
  Serious: Yes (Hospitalization)
  Sender: FDA-Public Use
  Company Number: PHHY2012DE031596

PATIENT
  Sex: Male

DRUGS (3)
  1. IBUPROFEN [Concomitant]
  2. CANDESARTAN CILEXETIL [Concomitant]
     Indication: HYPERTENSION
     Dosage: 16 MG, PER DAY
     Route: 048
  3. GLEEVEC [Suspect]
     Indication: CHRONIC MYELOID LEUKAEMIA
     Dosage: 400 MG, QD
     Route: 048
     Dates: start: 20100901

REACTIONS (3)
  - INTERVERTEBRAL DISC PROTRUSION [None]
  - MUSCLE TIGHTNESS [None]
  - DISEASE RECURRENCE [None]
